FAERS Safety Report 19958853 (Version 3)
Quarter: 2022Q1

REPORT INFORMATION
  Report Type: Spontaneous
  Country: BR (occurrence: BR)
  Receive Date: 20211015
  Receipt Date: 20220105
  Transmission Date: 20220423
  Serious: Yes (Other)
  Sender: FDA-Public Use
  Company Number: BR-PFIZER INC-202101368153

PATIENT
  Age: 79 Year
  Sex: Female
  Weight: 46 kg

DRUGS (2)
  1. XALKORI [Suspect]
     Active Substance: CRIZOTINIB
     Indication: Lung neoplasm
     Dosage: 250 MG
     Dates: start: 20201216
  2. XALKORI [Suspect]
     Active Substance: CRIZOTINIB
     Dosage: 200 MG
     Dates: start: 202105, end: 20211018

REACTIONS (4)
  - Retroperitoneal abscess [Recovering/Resolving]
  - Renal abscess [Recovering/Resolving]
  - Cyst [Recovering/Resolving]
  - Abscess [Recovering/Resolving]

NARRATIVE: CASE EVENT DATE: 20210901
